FAERS Safety Report 7308656-0 (Version None)
Quarter: 2011Q1

REPORT INFORMATION
  Report Type: 
  Country: None (occurrence: None)
  Receive Date: 20110210
  Receipt Date: 20110202
  Transmission Date: 20110831
  Serious: Yes (Hospitalization, Other)
  Sender: FDA-Public Use
  Company Number: 2010SP004854

PATIENT
  Age: 40 Year
  Sex: Female
  Weight: 90.7194 kg

DRUGS (3)
  1. ADVIL [Concomitant]
  2. NUVARING [Suspect]
     Indication: PREMENSTRUAL SYNDROME
     Dosage: VAG
     Route: 067
     Dates: start: 20080401, end: 20080728
  3. NUVARING [Suspect]
     Indication: MENORRHAGIA
     Dosage: VAG
     Route: 067
     Dates: start: 20080401, end: 20080728

REACTIONS (25)
  - PULMONARY EMBOLISM [None]
  - PULMONARY INFARCTION [None]
  - SMEAR CERVIX ABNORMAL [None]
  - GASTRITIS [None]
  - IRON DEFICIENCY [None]
  - ABDOMINAL PAIN UPPER [None]
  - THROMBOSIS [None]
  - PNEUMONIA [None]
  - BACK PAIN [None]
  - CHEST PAIN [None]
  - ALOPECIA [None]
  - FIBRIN D DIMER INCREASED [None]
  - PRODUCTIVE COUGH [None]
  - MUSCLE SPASMS [None]
  - PLEURAL EFFUSION [None]
  - ATELECTASIS [None]
  - PULMONARY OEDEMA [None]
  - HEADACHE [None]
  - PULMONARY NECROSIS [None]
  - UTERINE HAEMORRHAGE [None]
  - DEPRESSION [None]
  - UTERINE POLYP [None]
  - LUNG INFILTRATION [None]
  - AMNESIA [None]
  - WEIGHT INCREASED [None]
